FAERS Safety Report 13903945 (Version 1)
Quarter: 2017Q3

REPORT INFORMATION
  Report Type: Report from Study
  Country: None (occurrence: US)
  Receive Date: 20170824
  Receipt Date: 20170824
  Transmission Date: 20171127
  Serious: Yes (Hospitalization)
  Sender: FDA-Public Use
  Company Number: US-ABBVIE-17K-163-1999203-00

PATIENT
  Age: 62 Year
  Sex: Female
  Weight: 42.68 kg

DRUGS (4)
  1. DETROL LA [Concomitant]
     Active Substance: TOLTERODINE TARTRATE
     Indication: BLADDER DISORDER
  2. VITAMIN D [Concomitant]
     Active Substance: CHOLECALCIFEROL
     Indication: VITAMIN SUPPLEMENTATION
  3. PROLIA [Concomitant]
     Active Substance: DENOSUMAB
     Indication: OSTEOPOROSIS
  4. HUMIRA [Suspect]
     Active Substance: ADALIMUMAB
     Indication: COLITIS ULCERATIVE
     Route: 058
     Dates: start: 20161006

REACTIONS (10)
  - Pyrexia [Unknown]
  - Vomiting [Recovering/Resolving]
  - Weight decreased [Recovered/Resolved]
  - Gastrointestinal inflammation [Recovered/Resolved]
  - Nausea [Recovering/Resolving]
  - Gastrointestinal infection [Recovering/Resolving]
  - Drug effect incomplete [Unknown]
  - Colitis ulcerative [Recovered/Resolved]
  - Insomnia [Recovered/Resolved]
  - Diarrhoea [Unknown]

NARRATIVE: CASE EVENT DATE: 2017
